FAERS Safety Report 4345903-1 (Version None)
Quarter: 2004Q2

REPORT INFORMATION
  Report Type: 
  Country: None (occurrence: None)
  Receive Date: 20040421
  Receipt Date: 20040405
  Transmission Date: 20050107
  Serious: Yes (Other)
  Sender: FDA-Public Use
  Company Number: 191006

PATIENT
  Age: 43 Year
  Sex: Female
  Weight: 71.6683 kg

DRUGS (2)
  1. AVONEX [Suspect]
     Indication: MULTIPLE SCLEROSIS
     Dosage: 30 MCG QW IM
     Route: 030
     Dates: start: 20010101, end: 20030901
  2. AVONEX [Suspect]
     Indication: MULTIPLE SCLEROSIS
     Dosage: 30 MCG QW IM
     Route: 030
     Dates: start: 20030901

REACTIONS (4)
  - EPIDERMAL NAEVUS [None]
  - INJECTION SITE BURNING [None]
  - INJECTION SITE ERYTHEMA [None]
  - MALIGNANT MELANOMA [None]
